FAERS Safety Report 6156540-0 (Version None)
Quarter: 2009Q2

REPORT INFORMATION
  Report Type: 
  Country: None (occurrence: None)
  Receive Date: 20090413
  Receipt Date: 20090213
  Transmission Date: 20091009
  Serious: Yes (Death, Other)
  Sender: FDA-Public Use
  Company Number: OPER20090019

PATIENT
  Age: 50 Year
  Sex: Male
  Weight: 105.6881 kg

DRUGS (8)
  1. OPANA ER [Suspect]
     Dates: end: 20081001
  2. OPANA [Suspect]
     Dates: end: 20081001
  3. LORAZEPAM [Concomitant]
  4. CITALOPRAM HYDROBROMIDE [Concomitant]
  5. TRAZODONE [Concomitant]
  6. PREGABALIN [Concomitant]
  7. LAMOTRIGINE [Concomitant]
  8. CAFFEINE [Concomitant]

REACTIONS (10)
  - ACCIDENTAL DEATH [None]
  - ACCIDENTAL OVERDOSE [None]
  - AORTIC ARTERIOSCLEROSIS [None]
  - ARTERIOSCLEROSIS CORONARY ARTERY [None]
  - CORONARY ARTERY STENOSIS [None]
  - DRUG ABUSE [None]
  - HEPATIC CONGESTION [None]
  - HEPATIC STEATOSIS [None]
  - RENAL DISORDER [None]
  - THERAPEUTIC AGENT TOXICITY [None]
